FAERS Safety Report 5868725-9 (Version None)
Quarter: 2008Q3

REPORT INFORMATION
  Report Type: 
  Country: None (occurrence: None)
  Receive Date: 20080903
  Receipt Date: 20080825
  Transmission Date: 20090109
  Serious: Yes (Disabling, Other)
  Sender: FDA-Public Use
  Company Number: US-PURDUE-USA_2008_0033804

PATIENT
  Age: 45 Year
  Sex: Female

DRUGS (2)
  1. OXYCONTIN [Suspect]
     Indication: NECK PAIN
     Dosage: 60 MG, BID
     Route: 048
  2. VALIUM [Concomitant]
     Indication: MUSCLE RELAXANT THERAPY

REACTIONS (3)
  - DENTAL CARIES [None]
  - DRY MOUTH [None]
  - TOOTH EXTRACTION [None]
